FAERS Safety Report 7591099-2 (Version None)
Quarter: 2011Q3

REPORT INFORMATION
  Report Type: 
  Country: None (occurrence: None)
  Receive Date: 20110705
  Receipt Date: 20110623
  Transmission Date: 20111222
  Serious: Yes (Hospitalization)
  Sender: FDA-Public Use
  Company Number: CA-ASTRAZENECA-2011SE38291

PATIENT
  Age: 81 Year
  Sex: Male

DRUGS (1)
  1. ENTOCORT EC [Suspect]
     Indication: CROHN'S DISEASE
     Route: 048
     Dates: start: 20110426, end: 20110621

REACTIONS (8)
  - DIABETES MELLITUS [None]
  - ASTHENIA [None]
  - INTERVERTEBRAL DISC PROTRUSION [None]
  - MUSCLE ATROPHY [None]
  - HYPERGLYCAEMIA [None]
  - VISION BLURRED [None]
  - ABASIA [None]
  - HYPERTENSION [None]
